FAERS Safety Report 5106535-0 (Version None)
Quarter: 2006Q3

REPORT INFORMATION
  Report Type: 
  Country: None (occurrence: None)
  Receive Date: 20060731
  Receipt Date: 20060124
  Transmission Date: 20061208
  Serious: Yes (Hospitalization)
  Sender: FDA-Public Use
  Company Number: US-JNJFOC-20060105648

PATIENT
  Age: 45 Year
  Sex: Female

DRUGS (2)
  1. RISPERDAL [Suspect]
     Indication: DEPRESSION
     Dosage: 1 MG, 1 IN 1 DAY, ORAL
     Route: 048
     Dates: start: 20050801, end: 20060110
  2. RISPERDAL CONSTRA (RISPERIDONE) MICROSPHERES [Suspect]
     Indication: DEPRESSION
     Dosage: 37.5 MG , 1 IN 2 WEEKS, INTRAMUSCULAR
     Route: 030
     Dates: start: 20051101, end: 20051201

REACTIONS (5)
  - DROOLING [None]
  - DYSPHAGIA [None]
  - INSOMNIA [None]
  - NERVOUSNESS [None]
  - SUICIDAL IDEATION [None]
